FAERS Safety Report 10675726 (Version 1)
Quarter: 2014Q4

REPORT INFORMATION
  Report Type: Spontaneous
  Country: CN (occurrence: US)
  Receive Date: 20141224
  Receipt Date: 20141224
  Transmission Date: 20150529
  Serious: No
  Sender: FDA-Public Use
  Company Number: CN-ACORDA-ACO_103076_2014

PATIENT

DRUGS (1)
  1. TIZANIDINE (TIZANIDINE) [Suspect]
     Active Substance: TIZANIDINE
     Indication: TRIGEMINAL NEURALGIA
     Dosage: UNK,UNK
     Route: 065

REACTIONS (1)
  - Disease complication [Unknown]
